FAERS Safety Report 5669788-6 (Version None)
Quarter: 2008Q1

REPORT INFORMATION
  Report Type: 
  Country: None (occurrence: None)
  Receive Date: 20080317
  Receipt Date: 20080305
  Transmission Date: 20080703
  Serious: Yes (Other)
  Sender: FDA-Public Use
  Company Number: GB-PFIZER INC-2008016900

PATIENT
  Sex: Male
  Weight: 99 kg

DRUGS (2)
  1. CHAMPIX [Suspect]
     Indication: SMOKING CESSATION THERAPY
     Route: 048
     Dates: start: 20071217, end: 20080130
  2. SIMVASTATIN [Concomitant]
     Route: 048

REACTIONS (1)
  - COUGH [None]
